FAERS Safety Report 4670876-1 (Version None)
Quarter: 2005Q2

REPORT INFORMATION
  Report Type: 
  Country: None (occurrence: None)
  Receive Date: 20050523
  Receipt Date: 20050517
  Transmission Date: 20051028
  Serious: Yes (Death)
  Sender: FDA-Public Use
  Company Number: DE-MERCK-0505DEU00116

PATIENT

DRUGS (2)
  1. PRIMAXIN [Suspect]
     Indication: SEPSIS
     Route: 042
  2. [THERAPY UNSPECIFIED] [Concomitant]
     Route: 065

REACTIONS (2)
  - BLOOD BILIRUBIN INCREASED [None]
  - SEPSIS [None]
